FAERS Safety Report 7926710-7 (Version None)
Quarter: 2011Q4

REPORT INFORMATION
  Report Type: 
  Country: None (occurrence: None)
  Receive Date: 20111118
  Receipt Date: 20111104
  Transmission Date: 20120403
  Serious: Yes (Other)
  Sender: FDA-Public Use
  Company Number: US-JNJFOC-20111107214

PATIENT
  Sex: Male

DRUGS (1)
  1. DURAGESIC-100 [Suspect]
     Indication: BACK PAIN
     Route: 062

REACTIONS (10)
  - ASTHENIA [None]
  - DYSPNOEA [None]
  - INTENTIONAL DRUG MISUSE [None]
  - PAIN [None]
  - WRONG TECHNIQUE IN DRUG USAGE PROCESS [None]
  - DISCOMFORT [None]
  - THERAPEUTIC RESPONSE DELAYED [None]
  - THERAPEUTIC RESPONSE DECREASED [None]
  - ANXIETY [None]
  - INAPPROPRIATE SCHEDULE OF DRUG ADMINISTRATION [None]
